FAERS Safety Report 8139005-6 (Version None)
Quarter: 2012Q1

REPORT INFORMATION
  Report Type: 
  Country: None (occurrence: None)
  Receive Date: 20120215
  Receipt Date: 20120206
  Transmission Date: 20120608
  Serious: Yes (Hospitalization)
  Sender: FDA-Public Use
  Company Number: JP-UCBSA-051141

PATIENT
  Age: 43 Year
  Sex: Female

DRUGS (5)
  1. GABAPENTIN [Concomitant]
     Route: 048
     Dates: start: 20110719
  2. KEPPRA [Suspect]
     Route: 048
     Dates: start: 20111005, end: 20111127
  3. LEXIN [Concomitant]
     Route: 048
     Dates: start: 20110331
  4. KEPPRA [Suspect]
     Route: 048
     Dates: start: 20111128
  5. DEPAKENE [Concomitant]
     Route: 048
     Dates: start: 20100506

REACTIONS (1)
  - ILEUS [None]
